FAERS Safety Report 12221892 (Version 1)
Quarter: 2016Q1

REPORT INFORMATION
  Report Type: Spontaneous
  Country: US (occurrence: US)
  Receive Date: 20160330
  Receipt Date: 20160330
  Transmission Date: 20160526
  Serious: No
  Sender: FDA-Public Use
  Company Number: US-MYLANLABS-2015M1011467

PATIENT
  Age: 67 Year
  Sex: Male

DRUGS (2)
  1. FENTANYL TRANSDERMAL SYSTEM [Suspect]
     Active Substance: FENTANYL
     Indication: BACK PAIN
     Dosage: 100 ?G, QH, CHANGES Q. 48 HR
     Route: 062
     Dates: start: 2009
  2. FENTANYL. [Suspect]
     Active Substance: FENTANYL
     Indication: BACK PAIN
     Dosage: 50 ?G, QH, CHANGES Q. 48 HR
     Route: 062
     Dates: start: 2009

REACTIONS (4)
  - Drug effect increased [Recovered/Resolved]
  - Hypersomnia [Recovered/Resolved]
  - Asthenia [Recovered/Resolved]
  - Unevaluable event [Recovered/Resolved]

NARRATIVE: CASE EVENT DATE: 20150330
